FAERS Safety Report 23621924 (Version 1)
Quarter: 2024Q1

REPORT INFORMATION
  Report Type: Spontaneous
  Country: US (occurrence: None)
  Receive Date: 20240311
  Receipt Date: 20240311
  Transmission Date: 20240410
  Serious: Yes (Hospitalization)
  Sender: FDA-Public Use
  Company Number: None

PATIENT
  Age: 25 Year
  Sex: Male
  Weight: 73.5 kg

DRUGS (8)
  1. KYMRIAH [Suspect]
     Active Substance: TISAGENLECLEUCEL
     Indication: Acute lymphocytic leukaemia
     Dosage: 16 ML ONCE INTRAVENOUS DRIP
     Route: 041
     Dates: start: 20230920
  2. DEXAMETHASONE [Suspect]
     Active Substance: DEXAMETHASONE
     Dates: start: 20230922, end: 20231012
  3. anakinra (Kineret) [Concomitant]
     Dates: start: 20230924, end: 20231008
  4. ruxolitinib (Jakafi) [Concomitant]
     Dates: start: 20230926, end: 20231002
  5. vasopressin (Vasostrict [Concomitant]
     Dates: start: 20230925, end: 20230928
  6. VITAMIN K [Concomitant]
     Active Substance: PHYTONADIONE
     Dates: start: 20230915, end: 20230927
  7. amphotericin B liposomal (Ambisome) [Concomitant]
     Dates: start: 20231018, end: 20231101
  8. NOXAFIL [Concomitant]
     Active Substance: POSACONAZOLE
     Dates: start: 20230916, end: 20231101

REACTIONS (15)
  - Immune effector cell-associated neurotoxicity syndrome [None]
  - Haemophagocytic lymphohistiocytosis [None]
  - Abscess [None]
  - Distributive shock [None]
  - Duodenal ulcer perforation [None]
  - Muscle haemorrhage [None]
  - Philadelphia positive chronic myeloid leukaemia [None]
  - Thrombocytopenia [None]
  - Escherichia urinary tract infection [None]
  - Mucormycosis [None]
  - Fungaemia [None]
  - Renal disorder [None]
  - Mental status changes [None]
  - Unresponsive to stimuli [None]
  - Pulse absent [None]

NARRATIVE: CASE EVENT DATE: 20230920
